FAERS Safety Report 4968688-4 (Version None)
Quarter: 2006Q2

REPORT INFORMATION
  Report Type: 
  Country: None (occurrence: None)
  Receive Date: 20060405
  Receipt Date: 20060315
  Transmission Date: 20061013
  Serious: Yes (Other)
  Sender: FDA-Public Use
  Company Number: 2006038495

PATIENT
  Age: 55 Year
  Sex: Female

DRUGS (3)
  1. EPELIN KAPSEALS  (PHENYTOIN SODIUM) [Suspect]
     Indication: EPILEPSY
     Dosage: 200 MG (100 MG, 2 IN 1 D), ORAL
     Route: 048
     Dates: start: 19860101, end: 20060318
  2. HIDANTAL (PHENYTOIN) [Suspect]
     Indication: EPILEPSY
     Dosage: ORAL
     Route: 048
  3. PURAN T4 (LEVOTHYROXINE SODIUM) [Concomitant]

REACTIONS (6)
  - CONFUSIONAL STATE [None]
  - CONVULSION [None]
  - FEELING ABNORMAL [None]
  - IRRITABILITY [None]
  - MOUTH INJURY [None]
  - TONGUE INJURY [None]
